FAERS Safety Report 8834092 (Version 5)
Quarter: 2013Q4

REPORT INFORMATION
  Report Type: Spontaneous
  Country: US (occurrence: US)
  Receive Date: 20121010
  Receipt Date: 20131031
  Transmission Date: 20140711
  Serious: Yes (Other)
  Sender: FDA-Public Use
  Company Number: US-009507513-1209USA003663

PATIENT
  Age: 55 Year
  Sex: Male
  Weight: 108.84 kg

DRUGS (2)
  1. TINACTIN CHILL DEODORANT SPRAY POWDER [Suspect]
     Indication: TINEA PEDIS
     Dosage: UNK, UNKNOWN
     Route: 003
     Dates: start: 20120904
  2. ANALGESIC (UNSPECIFIED) [Concomitant]
     Indication: MUSCULOSKELETAL PAIN
     Dosage: UNK, UNKNOWN
     Dates: start: 2005

REACTIONS (9)
  - Chemical injury [Unknown]
  - Burns third degree [Unknown]
  - Hypersensitivity [Unknown]
  - Burning sensation [Unknown]
  - Local swelling [Unknown]
  - Blister [Unknown]
  - Pruritus [Unknown]
  - Erythema [Unknown]
  - Pain [Recovered/Resolved]
